FAERS Safety Report 11916085 (Version 2)
Quarter: 2016Q1

REPORT INFORMATION
  Report Type: Spontaneous
  Country: US (occurrence: US)
  Receive Date: 20160114
  Receipt Date: 20160218
  Transmission Date: 20160526
  Serious: Yes (Other)
  Sender: FDA-Public Use
  Company Number: US-NOVOPROD-476337

PATIENT
  Age: 64 Year
  Sex: Male
  Weight: 102.4 kg

DRUGS (1)
  1. NOVOLOG [Suspect]
     Active Substance: INSULIN ASPART
     Indication: TYPE 1 DIABETES MELLITUS
     Dosage: SLIDING SCALE AVERAGING 20 UNITS, TID
     Route: 058
     Dates: start: 20151001

REACTIONS (5)
  - Patella fracture [Recovering/Resolving]
  - Fall [Recovering/Resolving]
  - Amnesia [Not Recovered/Not Resolved]
  - Blood glucose decreased [Recovered/Resolved]
  - Rib fracture [Recovering/Resolving]

NARRATIVE: CASE EVENT DATE: 201512
